FAERS Safety Report 4756675-0 (Version None)
Quarter: 2005Q3

REPORT INFORMATION
  Report Type: 
  Country: None (occurrence: None)
  Receive Date: 20050830
  Receipt Date: 20050325
  Transmission Date: 20060218
  Serious: Yes (Hospitalization)
  Sender: FDA-Public Use
  Company Number: FR-GLAXOSMITHKLINE-B0376166A

PATIENT
  Age: 55 Year
  Sex: Male

DRUGS (12)
  1. ZOVIRAX [Suspect]
     Dosage: 1800MG PER DAY
     Route: 042
     Dates: start: 20050308, end: 20050310
  2. SOLU-MEDROL [Concomitant]
     Dosage: 20MG PER DAY
     Route: 048
  3. NAVELBINE [Concomitant]
     Route: 042
  4. CISPLATIN [Concomitant]
     Route: 042
  5. SKENAN [Concomitant]
     Dosage: 10MG TWICE PER DAY
     Route: 048
  6. ZELITREX [Concomitant]
     Dosage: 3G PER DAY
     Route: 048
     Dates: start: 20050307, end: 20050308
  7. CLONAZEPAM [Concomitant]
     Dosage: 20DROP PER DAY
     Dates: start: 20050308
  8. AUGMENTIN '125' [Concomitant]
     Dosage: 3G PER DAY
     Dates: start: 20050308
  9. NEURONTIN [Concomitant]
     Dosage: 300MG PER DAY
     Dates: start: 20050308
  10. ZOVIRAX [Concomitant]
     Dates: start: 20050308
  11. VITABACK [Concomitant]
     Route: 050
  12. B12 VITAMIN [Concomitant]
     Route: 047

REACTIONS (7)
  - BLOOD CREATININE INCREASED [None]
  - CONFUSIONAL STATE [None]
  - DISORIENTATION [None]
  - HAEMATURIA [None]
  - HALLUCINATION [None]
  - LEUKOCYTURIA [None]
  - RENAL FAILURE ACUTE [None]
